FAERS Safety Report 20051049 (Version 1)
Quarter: 2021Q4

REPORT INFORMATION
  Report Type: Spontaneous
  Country: CA (occurrence: None)
  Receive Date: 20211110
  Receipt Date: 20211110
  Transmission Date: 20220303
  Serious: Yes (Other)
  Sender: FDA-Public Use
  Company Number: CA-ROCHE-2951045

PATIENT
  Sex: Male

DRUGS (6)
  1. RITUXIMAB [Suspect]
     Active Substance: RITUXIMAB
     Indication: Granulomatosis with polyangiitis
     Dosage: 1000MG AT DAY 1 AND DAY 15 THEN 500MG
     Route: 042
     Dates: start: 20210413, end: 20210427
  2. RITUXIMAB [Suspect]
     Active Substance: RITUXIMAB
     Route: 042
     Dates: start: 20210413
  3. CODEINE [Concomitant]
     Active Substance: CODEINE
  4. LEFLUNOMIDE [Concomitant]
     Active Substance: LEFLUNOMIDE
     Route: 065
  5. PREDNISONE [Concomitant]
     Active Substance: PREDNISONE
     Route: 065
  6. METHOTREXATE [Concomitant]
     Active Substance: METHOTREXATE
     Route: 058
     Dates: start: 20191201

REACTIONS (8)
  - Knee operation [Unknown]
  - Arthropathy [Unknown]
  - Off label use [Unknown]
  - Nasal congestion [Not Recovered/Not Resolved]
  - Bloody discharge [Not Recovered/Not Resolved]
  - Purulent discharge [Not Recovered/Not Resolved]
  - Inflammation [Not Recovered/Not Resolved]
  - Scab [Not Recovered/Not Resolved]
